FAERS Safety Report 15431424 (Version 3)
Quarter: 2019Q4

REPORT INFORMATION
  Report Type: Spontaneous
  Country: US (occurrence: US)
  Receive Date: 20180926
  Receipt Date: 20191105
  Transmission Date: 20200122
  Serious: No
  Sender: FDA-Public Use
  Company Number: US-SA-2018SA266002

PATIENT
  Age: 68 Year
  Sex: Male

DRUGS (3)
  1. TOUJEO MAX [Suspect]
     Active Substance: INSULIN GLARGINE
     Dosage: 200 U, QD
     Route: 065
  2. TOUJEO MAX [Suspect]
     Active Substance: INSULIN GLARGINE
     Dosage: 204 U, UNK
     Route: 065
  3. TOUJEO MAX [Suspect]
     Active Substance: INSULIN GLARGINE
     Indication: TYPE 2 DIABETES MELLITUS
     Dosage: 120 U, QD
     Route: 065

REACTIONS (7)
  - Product dose omission [Unknown]
  - Blood glucose decreased [Unknown]
  - Pyrexia [Unknown]
  - Blood glucose increased [Unknown]
  - Peripheral swelling [Unknown]
  - Weight decreased [Unknown]
  - Tremor [Unknown]
